FAERS Safety Report 5740518-2 (Version None)
Quarter: 2008Q2

REPORT INFORMATION
  Report Type: 
  Country: None (occurrence: None)
  Receive Date: 20080513
  Receipt Date: 20080508
  Transmission Date: 20081010
  Serious: No
  Sender: FDA-Public Use
  Company Number: APP200800356

PATIENT
  Age: 42 Year
  Sex: Female

DRUGS (7)
  1. HEPARIN SODIUM INJECTION [Suspect]
     Indication: CYST
     Dosage: 40000 USP UNITS, ONCE OR TWICE DAILY BLADDER INSTILLATION, INTRAVESICAL
     Route: 043
     Dates: start: 20080101
  2. LIDOCAINE [Concomitant]
  3. SODIUM BICARBONATE IN PLASTIC CONTAINER [Concomitant]
  4. SOLU-CORTEF [Concomitant]
  5. AZITHROMYCIN [Concomitant]
  6. POLY IRON FORTE [Concomitant]
  7. NYSTATIN [Concomitant]

REACTIONS (2)
  - BURNING SENSATION [None]
  - PHARMACEUTICAL PRODUCT COMPLAINT [None]
